FAERS Safety Report 7256559 (Version 5)
Quarter: 2013Q3

REPORT INFORMATION
  Report Type: Spontaneous
  Country: US (occurrence: US)
  Receive Date: 20100126
  Receipt Date: 20130912
  Transmission Date: 20140515
  Serious: Yes (Death, Hospitalization)
  Sender: FDA-Public Use
  Company Number: US-BAYER-201011808NA

PATIENT
  Age: 36 Year
  Sex: Female
  Weight: 140.91 kg

DRUGS (7)
  1. YAZ [Suspect]
     Dosage: 1 DF (DAILY DOSE), , ORAL
     Route: 048
     Dates: end: 20071125
  2. YASMIN [Suspect]
     Indication: PREMENSTRUAL SYNDROME
     Route: 048
     Dates: start: 200202, end: 200407
  3. YASMIN [Suspect]
     Indication: CONTRACEPTION
     Dosage: UNK
     Dates: start: 20020519, end: 20040321
  4. YASMIN [Suspect]
     Indication: PREMENSTRUAL SYNDROME
     Route: 048
     Dates: start: 200608, end: 20071125
  5. ALEVE COLD + SINUS [Concomitant]
     Dosage: 2002 AND 2006
     Route: 065
  6. ORAL CONTRACEPTIVE NOS [Concomitant]
     Dosage: UNK
     Dates: start: 2007
  7. AZITHROMYCIN [Concomitant]
     Dosage: 250 MG, UNK

REACTIONS (3)
  - Pulmonary embolism [Fatal]
  - Respiratory failure [Fatal]
  - Hypotension [Fatal]
